FAERS Safety Report 19518987 (Version 1)
Quarter: 2021Q3

REPORT INFORMATION
  Report Type: Other
  Country: IT (occurrence: IT)
  Receive Date: 20210712
  Receipt Date: 20210712
  Transmission Date: 20211014
  Serious: Yes (Other)
  Sender: FDA-Public Use
  Company Number: IT-ROCHE-2865800

PATIENT

DRUGS (4)
  1. 5?FU [Suspect]
     Active Substance: FLUOROURACIL
     Indication: ANAL CANCER
     Route: 065
  2. CAPECITABINE. [Suspect]
     Active Substance: CAPECITABINE
     Indication: ANAL CANCER
     Route: 048
  3. CISPLATIN. [Suspect]
     Active Substance: CISPLATIN
     Indication: ANAL CANCER
     Route: 065
  4. MITOMYCIN. [Suspect]
     Active Substance: MITOMYCIN
     Indication: ANAL CANCER
     Route: 065

REACTIONS (6)
  - Dyspareunia [Unknown]
  - Pelvic fracture [Unknown]
  - Thrombocytopenia [Unknown]
  - Skin exfoliation [Unknown]
  - Diarrhoea [Unknown]
  - Proctitis [Unknown]
